FAERS Safety Report 8051793-6 (Version None)
Quarter: 2012Q1

REPORT INFORMATION
  Report Type: 
  Country: None (occurrence: None)
  Receive Date: 20120118
  Receipt Date: 20120112
  Transmission Date: 20120608
  Serious: No
  Sender: FDA-Public Use
  Company Number: US-BIOGENIDEC-2012BI001691

PATIENT
  Sex: Female

DRUGS (1)
  1. TYSABRI [Suspect]
     Indication: MULTIPLE SCLEROSIS
     Route: 042
     Dates: start: 20111222

REACTIONS (7)
  - BALANCE DISORDER [None]
  - MUSCLE SPASMS [None]
  - URINARY TRACT INFECTION [None]
  - MUSCULOSKELETAL DISORDER [None]
  - DIZZINESS [None]
  - FALL [None]
  - CHILLS [None]
